FAERS Safety Report 7332743-4 (Version None)
Quarter: 2011Q1

REPORT INFORMATION
  Report Type: 
  Country: None (occurrence: None)
  Receive Date: 20110304
  Receipt Date: 20101228
  Transmission Date: 20110831
  Serious: No
  Sender: FDA-Public Use
  Company Number: US-TYCO HEALTHCARE/MALLINCKRODT-T201002482

PATIENT
  Sex: Female

DRUGS (1)
  1. RESTORIL [Suspect]
     Dosage: 60 MG, UNK

REACTIONS (1)
  - ACNE [None]
